FAERS Safety Report 15344132 (Version 2)
Quarter: 2018Q3

REPORT INFORMATION
  Report Type: Report from Study
  Country: None (occurrence: IL)
  Receive Date: 20180903
  Receipt Date: 20180907
  Transmission Date: 20181010
  Serious: Yes (Death, Hospitalization)
  Sender: FDA-Public Use
  Company Number: IL-ABBVIE-18S-082-2466882-00

PATIENT
  Sex: Female

DRUGS (2)
  1. DUODOPA [Suspect]
     Active Substance: CARBIDOPA\LEVODOPA
     Indication: PARKINSON^S DISEASE
     Route: 050
     Dates: end: 20180823
  2. DUODOPA [Suspect]
     Active Substance: CARBIDOPA\LEVODOPA
     Dosage: CURRENT MD? 3.2 ML, CURRENT FIXED RATE? 1.8 ML/ HOUR, CURRENT ND? 1 ML CURRENT ED? 1.2 ML
     Route: 050
     Dates: start: 20140514

REACTIONS (7)
  - Gastrointestinal infection [Unknown]
  - Pain [Unknown]
  - Pseudomonas infection [Fatal]
  - General physical health deterioration [Unknown]
  - Diarrhoea [Unknown]
  - Clostridium test positive [Unknown]
  - Septic shock [Fatal]

NARRATIVE: CASE EVENT DATE: 2018
